FAERS Safety Report 8232363-3 (Version None)
Quarter: 2012Q1

REPORT INFORMATION
  Report Type: 
  Country: None (occurrence: None)
  Receive Date: 20120323
  Receipt Date: 20120319
  Transmission Date: 20120608
  Serious: Yes (Other)
  Sender: FDA-Public Use
  Company Number: US-GLAXOSMITHKLINE-A0970366A

PATIENT
  Sex: Male

DRUGS (2)
  1. ACYCLOVIR [Suspect]
     Indication: GENITAL HERPES
     Route: 048
     Dates: start: 20100101
  2. ZOVIRAX [Suspect]
     Indication: HERPES SIMPLEX
     Route: 048
     Dates: start: 20100101

REACTIONS (1)
  - THROMBOCYTOSIS [None]
